FAERS Safety Report 8575449-6 (Version None)
Quarter: 2012Q3

REPORT INFORMATION
  Report Type: 
  Country: None (occurrence: None)
  Receive Date: 20120807
  Receipt Date: 20120731
  Transmission Date: 20120928
  Serious: Yes (Other)
  Sender: FDA-Public Use
  Company Number: PHHY2012IL067307

PATIENT
  Age: 58 Year
  Sex: Female

DRUGS (1)
  1. EXFORGE [Suspect]
     Indication: HYPERTENSION
     Dosage: (80/5) MG ORALLY
     Route: 048
     Dates: start: 20120501

REACTIONS (4)
  - DYSPNOEA [None]
  - ASCITES [None]
  - PLEURAL EFFUSION [None]
  - DEPENDENCE [None]
